FAERS Safety Report 10100694 (Version 1)
Quarter: 2014Q2

REPORT INFORMATION
  Report Type: Report from Study
  Country: BR (occurrence: BR)
  Receive Date: 20140423
  Receipt Date: 20140423
  Transmission Date: 20141212
  Serious: Yes (Other)
  Sender: FDA-Public Use
  Company Number: PHHY2014BR047492

PATIENT
  Sex: Female
  Weight: 40 kg

DRUGS (1)
  1. FORASEQ [Suspect]
     Indication: HYPERSENSITIVITY
     Dosage: 1 DF, BID (IN THE MORNING AND AT NIGHT)
     Route: 048

REACTIONS (4)
  - Spinal disorder [Recovering/Resolving]
  - Osteoarthritis [Recovering/Resolving]
  - Cataract [Recovering/Resolving]
  - Nervousness [Recovering/Resolving]
